FAERS Safety Report 9125819 (Version 1)
Quarter: 2013Q1

REPORT INFORMATION
  Report Type: Spontaneous
  Country: US (occurrence: US)
  Receive Date: 20130121
  Receipt Date: 20130121
  Transmission Date: 20140127
  Serious: Yes (Other)
  Sender: FDA-Public Use
  Company Number: US-SHIRE-ALL1-2013-00137

PATIENT
  Age: 11 Year
  Sex: Female
  Weight: 43.54 kg

DRUGS (2)
  1. VYVANSE [Suspect]
     Indication: ATTENTION DEFICIT/HYPERACTIVITY DISORDER
     Dosage: 30 MG, 1X/DAY:QD
     Route: 048
     Dates: start: 201203, end: 201212
  2. VYVANSE [Suspect]
     Dosage: 30 MG, 1X/DAY:QD
     Route: 048
     Dates: start: 201301

REACTIONS (5)
  - Abnormal loss of weight [Not Recovered/Not Resolved]
  - Trichotillomania [Not Recovered/Not Resolved]
  - Hypophagia [Not Recovered/Not Resolved]
  - Dermatillomania [Not Recovered/Not Resolved]
  - Nervousness [Not Recovered/Not Resolved]
